FAERS Safety Report 18972148 (Version 7)
Quarter: 2024Q1

REPORT INFORMATION
  Report Type: Other
  Country: AT (occurrence: AT)
  Receive Date: 20210305
  Receipt Date: 20240226
  Transmission Date: 20240410
  Serious: Yes (Hospitalization)
  Sender: FDA-Public Use
  Company Number: AT-ROCHE-2777644

PATIENT
  Age: 42 Year
  Sex: Female
  Weight: 60 kg

DRUGS (43)
  1. HERCEPTIN [Suspect]
     Active Substance: TRASTUZUMAB
     Indication: HER2 positive breast cancer
     Route: 058
     Dates: start: 20180503, end: 20190502
  2. HERCEPTIN [Suspect]
     Active Substance: TRASTUZUMAB
     Route: 058
     Dates: start: 20190509, end: 20191227
  3. KADCYLA [Suspect]
     Active Substance: ADO-TRASTUZUMAB EMTANSINE
     Indication: HER2 positive breast cancer
     Route: 042
     Dates: start: 20161114, end: 20170424
  4. KADCYLA [Suspect]
     Active Substance: ADO-TRASTUZUMAB EMTANSINE
     Route: 042
     Dates: start: 20170821, end: 20171120
  5. FEMARA [Suspect]
     Active Substance: LETROZOLE
     Indication: HER2 positive breast cancer
     Route: 048
     Dates: start: 20180426, end: 20200225
  6. PERJETA [Suspect]
     Active Substance: PERTUZUMAB
     Indication: HER2 positive breast cancer
     Route: 058
     Dates: start: 201811
  7. PERJETA [Suspect]
     Active Substance: PERTUZUMAB
     Route: 058
     Dates: start: 20181122, end: 20181122
  8. PERJETA [Suspect]
     Active Substance: PERTUZUMAB
     Route: 058
     Dates: start: 20181213, end: 20190502
  9. TRENANTONE [Suspect]
     Active Substance: LEUPROLIDE ACETATE
     Indication: HER2 positive breast cancer
     Route: 058
     Dates: start: 201804, end: 20200225
  10. MORPHINE [Concomitant]
     Active Substance: MORPHINE
     Indication: General physical health deterioration
     Dosage: ONGOING = NOT CHECKED
     Route: 048
     Dates: start: 20200225, end: 20200417
  11. MORPHINE [Concomitant]
     Active Substance: MORPHINE
     Route: 042
     Dates: start: 20170530, end: 20200417
  12. POLYETHYLENE GLYCOL 3350\POTASSIUM CHLORIDE\SODIUM BICARBONATE\SODIUM [Concomitant]
     Active Substance: POLYETHYLENE GLYCOL 3350\POTASSIUM CHLORIDE\SODIUM BICARBONATE\SODIUM CHLORIDE
     Indication: Nausea
     Dosage: ONGOING = NOT CHECKED
     Route: 048
     Dates: start: 20200306, end: 20200311
  13. POLYETHYLENE GLYCOL 3350\POTASSIUM CHLORIDE\SODIUM BICARBONATE\SODIUM [Concomitant]
     Active Substance: POLYETHYLENE GLYCOL 3350\POTASSIUM CHLORIDE\SODIUM BICARBONATE\SODIUM CHLORIDE
     Indication: Vomiting
  14. VENLAFAXINE HYDROCHLORIDE [Concomitant]
     Active Substance: VENLAFAXINE HYDROCHLORIDE
     Route: 048
     Dates: start: 20190228
  15. ACETAMINOPHEN [Concomitant]
     Active Substance: ACETAMINOPHEN
     Indication: Nausea
     Dosage: ONGOING = NOT CHECKED
     Route: 042
     Dates: start: 20200228, end: 20200228
  16. ACETAMINOPHEN [Concomitant]
     Active Substance: ACETAMINOPHEN
     Indication: Vomiting
  17. NOVALGIN (AUSTRIA) [Concomitant]
     Dosage: ONGOING = NOT CHECKED
     Route: 048
     Dates: start: 20181117, end: 20200417
  18. NOVALGIN (AUSTRIA) [Concomitant]
     Dosage: ONGOING = NOT CHECKED
     Route: 048
     Dates: start: 20181112, end: 20181116
  19. DICLOFENAC SODIUM\ORPHENADRINE CITRATE [Concomitant]
     Active Substance: DICLOFENAC SODIUM\ORPHENADRINE CITRATE
     Route: 042
     Dates: start: 20181112, end: 20181113
  20. DICLOFENAC SODIUM\ORPHENADRINE CITRATE [Concomitant]
     Active Substance: DICLOFENAC SODIUM\ORPHENADRINE CITRATE
     Route: 042
     Dates: start: 20181115, end: 20181116
  21. MIRANAX [Concomitant]
     Dosage: ONGOING = NOT CHECKED
     Route: 048
     Dates: start: 20161115, end: 20200417
  22. LAFENE [Concomitant]
     Indication: Spinal pain
     Dosage: ONGOING = NOT CHECKED
     Route: 062
     Dates: start: 20190421, end: 20200224
  23. LAFENE [Concomitant]
     Indication: General physical health deterioration
     Dosage: ONGOING = NOT CHECKED
     Route: 062
     Dates: start: 20200225, end: 20200417
  24. LAFENE [Concomitant]
     Dosage: 12 UG/HR
     Route: 062
     Dates: start: 20181113
  25. DEXAMETHASONE [Concomitant]
     Active Substance: DEXAMETHASONE
     Indication: Nausea
     Dosage: ONGOING = NOT CHECKED
     Route: 042
     Dates: start: 20200229, end: 20200302
  26. DEXAMETHASONE [Concomitant]
     Active Substance: DEXAMETHASONE
     Indication: Vomiting
     Dosage: ONGOING = NOT CHECKED
     Route: 042
     Dates: start: 20200303, end: 20200309
  27. DEXAMETHASONE [Concomitant]
     Active Substance: DEXAMETHASONE
     Dosage: ONGOING = NOT CHECKED
     Route: 048
     Dates: start: 20170330, end: 20200417
  28. DEXAMETHASONE [Concomitant]
     Active Substance: DEXAMETHASONE
     Route: 042
     Dates: start: 20170530, end: 20170530
  29. XGEVA [Concomitant]
     Active Substance: DENOSUMAB
     Route: 058
     Dates: start: 2016, end: 20181129
  30. XGEVA [Concomitant]
     Active Substance: DENOSUMAB
     Route: 058
     Dates: start: 20190319, end: 201904
  31. LYRICA [Concomitant]
     Active Substance: PREGABALIN
     Indication: General physical health deterioration
     Dosage: ONGOING = NOT CHECKED
     Route: 048
     Dates: start: 20200225, end: 20200417
  32. ZOFRAN [Concomitant]
     Active Substance: ONDANSETRON HYDROCHLORIDE
     Indication: Nausea
     Dosage: ONGOING = NOT CHECKED
     Route: 042
     Dates: start: 20200228, end: 20200228
  33. ZOFRAN [Concomitant]
     Active Substance: ONDANSETRON HYDROCHLORIDE
     Indication: Vomiting
  34. ZOLPIDEM [Concomitant]
     Active Substance: ZOLPIDEM TARTRATE
     Indication: Nausea
     Dosage: ONGOING = NOT CHECKED
     Route: 048
     Dates: start: 20200228, end: 20200417
  35. ZOLPIDEM [Concomitant]
     Active Substance: ZOLPIDEM TARTRATE
     Indication: Vomiting
  36. ACETAMINOPHEN [Concomitant]
     Active Substance: ACETAMINOPHEN
     Indication: Metastases to central nervous system
     Dosage: ONGOING = NOT CHECKED
     Route: 048
     Dates: start: 20170609, end: 20200417
  37. EMEND [Concomitant]
     Active Substance: APREPITANT
     Dosage: ONGOING = NOT CHECKED
     Route: 048
     Dates: start: 20161115, end: 20200417
  38. MEFENAMIC ACID [Concomitant]
     Active Substance: MEFENAMIC ACID
     Dosage: ONGOING = NOT CHECKED
     Route: 048
     Dates: start: 20170315, end: 20200417
  39. MEFENAMIC ACID [Concomitant]
     Active Substance: MEFENAMIC ACID
     Dosage: ONGOING = NOT CHECKED
     Route: 048
     Dates: start: 20181113, end: 20181120
  40. ZOFRAN [Concomitant]
     Active Substance: ONDANSETRON HYDROCHLORIDE
     Dosage: ONGOING = NOT CHECKED
     Route: 048
     Dates: start: 20161115, end: 20200417
  41. FRAGMIN [Concomitant]
     Active Substance: DALTEPARIN SODIUM
     Dosage: ONGOING = NOT CHECKED
     Route: 058
     Dates: start: 20200228, end: 20200311
  42. XICLAV (AUSTRIA) [Concomitant]
     Route: 048
     Dates: start: 20181113, end: 20181120
  43. AMOXICILLIN [Concomitant]
     Active Substance: AMOXICILLIN
     Route: 048
     Dates: start: 201904, end: 201904

REACTIONS (1)
  - Post herpetic neuralgia [Not Recovered/Not Resolved]

NARRATIVE: CASE EVENT DATE: 20200225
